FAERS Safety Report 8086295-4 (Version None)
Quarter: 2012Q1

REPORT INFORMATION
  Report Type: 
  Country: None (occurrence: None)
  Receive Date: 20120128
  Receipt Date: 20110427
  Transmission Date: 20120608
  Serious: No
  Sender: FDA-Public Use
  Company Number: US-ABBOTT-11P-163-0722483-00

PATIENT
  Age: 50 Year
  Sex: Male

DRUGS (4)
  1. NAPROXEN [Concomitant]
     Indication: ARTHRITIS
  2. HUMIRA [Suspect]
     Indication: PSORIATIC ARTHROPATHY
     Route: 058
     Dates: start: 20040101
  3. METHOTREXATE [Concomitant]
     Indication: PRODUCT USED FOR UNKNOWN INDICATION
  4. EYE DROPS [Concomitant]
     Indication: UVEITIS

REACTIONS (7)
  - DRUG INEFFECTIVE [None]
  - CHILLS [None]
  - ARTHRITIS [None]
  - PYREXIA [None]
  - DYSSTASIA [None]
  - GAIT DISTURBANCE [None]
  - ARTHROPATHY [None]
